FAERS Safety Report 6021926-1 (Version None)
Quarter: 2008Q4

REPORT INFORMATION
  Report Type: 
  Country: None (occurrence: None)
  Receive Date: 20081223
  Receipt Date: 20081216
  Transmission Date: 20090506
  Serious: Yes (Other)
  Sender: FDA-Public Use
  Company Number: 230975K08USA

PATIENT
  Age: 43 Year
  Sex: Female

DRUGS (2)
  1. REBIF [Suspect]
     Indication: MULTIPLE SCLEROSIS
     Dosage: 44 MCG, 3 IN 1 WEEKS, SUBCUTANEOUS; 22 MCG, 3 IN 1 WEEKS
     Route: 058
     Dates: start: 20080908, end: 20081201
  2. REBIF [Suspect]
     Indication: MULTIPLE SCLEROSIS
     Dosage: 44 MCG, 3 IN 1 WEEKS, SUBCUTANEOUS; 22 MCG, 3 IN 1 WEEKS
     Route: 058
     Dates: start: 20081201

REACTIONS (12)
  - CONTUSION [None]
  - COUGH [None]
  - FATIGUE [None]
  - HEADACHE [None]
  - INFECTED CYST [None]
  - LIP SWELLING [None]
  - MOUTH ULCERATION [None]
  - RHINORRHOEA [None]
  - SNEEZING [None]
  - SWEAT GLAND DISORDER [None]
  - SWEAT GLAND INFECTION [None]
  - URINARY INCONTINENCE [None]
